FAERS Safety Report 8603799-3 (Version None)
Quarter: 2012Q3

REPORT INFORMATION
  Report Type: 
  Country: None (occurrence: None)
  Receive Date: 20120818
  Receipt Date: 20120807
  Transmission Date: 20120928
  Serious: Yes (Hospitalization)
  Sender: FDA-Public Use
  Company Number: FR-TEVA-352389ISR

PATIENT
  Sex: Male

DRUGS (6)
  1. FLUOROURACIL [Concomitant]
  2. SOLU-MEDROL [Concomitant]
  3. OXALIPLATIN [Suspect]
     Indication: COLON CANCER METASTATIC
     Dosage: 157 MILLIGRAM DAILY;
     Route: 042
     Dates: start: 20120717, end: 20120717
  4. CALCIUM GLUCONATE [Concomitant]
  5. ONDANSETRON [Concomitant]
  6. MAGNESIUM SULFATE [Concomitant]

REACTIONS (3)
  - MALAISE [None]
  - HYPERTHERMIA [None]
  - CHILLS [None]
